FAERS Safety Report 8478133-2 (Version None)
Quarter: 2012Q2

REPORT INFORMATION
  Report Type: 
  Country: None (occurrence: None)
  Receive Date: 20120629
  Receipt Date: 20120626
  Transmission Date: 20120825
  Serious: Yes (Hospitalization, Other)
  Sender: FDA-Public Use
  Company Number: US-GILEAD-2012-0052763

PATIENT
  Sex: Male

DRUGS (2)
  1. LETAIRIS [Suspect]
     Indication: PULMONARY ARTERIAL HYPERTENSION
     Dosage: 5 MG, UNK
     Route: 048
     Dates: start: 20111206, end: 20120409
  2. ADCIRCA [Suspect]

REACTIONS (5)
  - VISION BLURRED [None]
  - PAIN IN EXTREMITY [None]
  - ANAEMIA [None]
  - FEELING ABNORMAL [None]
  - HAEMORRHAGE [None]
